FAERS Safety Report 13045993 (Version 2)
Quarter: 2016Q4

REPORT INFORMATION
  Report Type: Spontaneous
  Country: NL (occurrence: NL)
  Receive Date: 20161220
  Receipt Date: 20161229
  Transmission Date: 20170207
  Serious: Yes (Hospitalization)
  Sender: FDA-Public Use
  Company Number: NL-PFIZER INC-2016585800

PATIENT
  Age: 17 Year
  Sex: Female
  Weight: 42 kg

DRUGS (3)
  1. AKINETON [Concomitant]
     Active Substance: BIPERIDEN HYDROCHLORIDE
     Dosage: 1 MG, 3X/DAY
     Route: 048
     Dates: start: 2013, end: 2016
  2. LORAZEPAM. [Suspect]
     Active Substance: LORAZEPAM
     Indication: DEPRESSION
     Dosage: 1 DF, 4X/DAY
     Route: 048
     Dates: start: 2011
  3. RISPERIDON [Interacting]
     Active Substance: RISPERIDONE
     Indication: HALLUCINATION, AUDITORY
     Dosage: 4 MG, 1X/DAY (1X.DAY 4 TABLETS)
     Route: 048
     Dates: start: 20130212

REACTIONS (5)
  - Suicide attempt [Recovered/Resolved with Sequelae]
  - Depression [Recovered/Resolved with Sequelae]
  - Obesity [Recovered/Resolved with Sequelae]
  - Eating disorder [Recovered/Resolved with Sequelae]
  - Drug interaction [Recovered/Resolved with Sequelae]

NARRATIVE: CASE EVENT DATE: 20140613
